FAERS Safety Report 18794049 (Version 1)
Quarter: 2021Q1

REPORT INFORMATION
  Report Type: Spontaneous
  Country: CN (occurrence: CN)
  Receive Date: 20210127
  Receipt Date: 20210127
  Transmission Date: 20210419
  Serious: Yes (Other)
  Sender: FDA-Public Use
  Company Number: CN-VALIDUS PHARMACEUTICALS LLC-CN-2021VAL000054

PATIENT

DRUGS (2)
  1. ROCALTROL [Suspect]
     Active Substance: CALCITRIOL
     Indication: OSTEOPOROSIS
     Dosage: 0.25 ?G, QD (0.25 MCG,1 IN 1 D)
     Route: 048
  2. JIN TIAN GE [Suspect]
     Active Substance: DIETARY SUPPLEMENT
     Indication: OSTEOPOROSIS
     Dosage: 3 DF, QD (1 DOSAGE FORMS,3 IN 1 D)
     Route: 048

REACTIONS (1)
  - Renal impairment [Unknown]
